FAERS Safety Report 17168774 (Version 1)
Quarter: 2019Q4

REPORT INFORMATION
  Report Type: Spontaneous
  Country: US (occurrence: US)
  Receive Date: 20191218
  Receipt Date: 20191218
  Transmission Date: 20200122
  Serious: No
  Sender: FDA-Public Use
  Company Number: US-009507513-1911USA008593

PATIENT
  Age: 61 Year
  Sex: Male

DRUGS (2)
  1. TAMSULOSIN HYDROCHLORIDE. [Suspect]
     Active Substance: TAMSULOSIN HYDROCHLORIDE
     Indication: URINARY HESITATION
     Dosage: UNK
  2. PROSCAR [Suspect]
     Active Substance: FINASTERIDE
     Indication: URINARY HESITATION
     Dosage: UNK

REACTIONS (1)
  - Sexual dysfunction [Unknown]
